FAERS Safety Report 7514090-0 (Version None)
Quarter: 2011Q2

REPORT INFORMATION
  Report Type: 
  Country: None (occurrence: None)
  Receive Date: 20110531
  Receipt Date: 20110517
  Transmission Date: 20111010
  Serious: Yes (Disabling, Congenital Anomaly)
  Sender: FDA-Public Use
  Company Number: DE-UCBSA-033232

PATIENT
  Sex: Female
  Weight: 2.44 kg

DRUGS (3)
  1. VALPROATE SODIUM [Suspect]
     Indication: EPILEPSY
     Route: 064
  2. KEPPRA [Suspect]
     Indication: EPILEPSY
     Route: 064
  3. FOLSAURE [Concomitant]
     Indication: PROPHYLAXIS OF NEURAL TUBE DEFECT
     Route: 064

REACTIONS (4)
  - FINGER HYPOPLASIA [None]
  - SMALL FOR DATES BABY [None]
  - DYSMORPHISM [None]
  - DRUG EXPOSURE DURING PREGNANCY [None]
